FAERS Safety Report 8571664-6 (Version None)
Quarter: 2012Q3

REPORT INFORMATION
  Report Type: 
  Country: None (occurrence: None)
  Receive Date: 20120806
  Receipt Date: 20120725
  Transmission Date: 20120928
  Serious: Yes (Other)
  Sender: FDA-Public Use
  Company Number: CA-JNJFOC-20120113001

PATIENT
  Sex: Female
  Weight: 72 kg

DRUGS (4)
  1. IMURAN [Concomitant]
  2. REMICADE [Suspect]
     Indication: CROHN'S DISEASE
     Dosage: ^TO THE PRESENT^
     Route: 042
     Dates: start: 20051103
  3. AZULFIDINE [Concomitant]
  4. APO-DOXAZOSIN [Concomitant]

REACTIONS (1)
  - ADRENAL NEOPLASM [None]
